FAERS Safety Report 16513987 (Version 1)
Quarter: 2019Q3

REPORT INFORMATION
  Report Type: Spontaneous
  Country: US (occurrence: US)
  Receive Date: 20190701
  Receipt Date: 20190701
  Transmission Date: 20191004
  Serious: No
  Sender: FDA-Public Use
  Company Number: US-ROCHE-2306079

PATIENT
  Sex: Male
  Weight: 74 kg

DRUGS (2)
  1. NEURONTIN [Suspect]
     Active Substance: GABAPENTIN
     Indication: DEPRESSION
     Route: 065
  2. KLONOPIN [Suspect]
     Active Substance: CLONAZEPAM
     Indication: ANXIETY
     Dosage: 0.75 MG IN AM AND 0.5MG AT BEDTIME ;ONGOING: UNKNOWN
     Route: 048

REACTIONS (2)
  - Depression [Unknown]
  - Conjunctivitis [Unknown]
